FAERS Safety Report 5492586-3 (Version None)
Quarter: 2007Q4

REPORT INFORMATION
  Report Type: 
  Country: None (occurrence: None)
  Receive Date: 20071022
  Receipt Date: 20071010
  Transmission Date: 20080405
  Serious: Yes (Other)
  Sender: FDA-Public Use
  Company Number: US-PFIZER INC-2007076038

PATIENT
  Sex: Female

DRUGS (9)
  1. LYRICA [Suspect]
     Indication: NEUROPATHY PERIPHERAL
     Dates: start: 20070905, end: 20070905
  2. DILANTIN [Suspect]
  3. CARDENE [Concomitant]
  4. VITAMINS [Concomitant]
  5. ACETYLSALICYLIC ACID SRT [Concomitant]
  6. VITAMIN CAP [Concomitant]
  7. PREMARIN [Concomitant]
  8. NEXIUM [Concomitant]
  9. VALIUM [Concomitant]

REACTIONS (3)
  - HEADACHE [None]
  - HYPERTENSION [None]
  - PALPITATIONS [None]
